FAERS Safety Report 5336381-4 (Version None)
Quarter: 2007Q2

REPORT INFORMATION
  Report Type: 
  Country: None (occurrence: None)
  Receive Date: 20070523
  Receipt Date: 20070508
  Transmission Date: 20071010
  Serious: Yes (Other)
  Sender: FDA-Public Use
  Company Number: 2007BI004284

PATIENT
  Age: 36 Year
  Sex: Female

DRUGS (1)
  1. NATALIZUMAB [Suspect]
     Indication: MULTIPLE SCLEROSIS
     Dosage: 300 MG;QM;IV
     Route: 042
     Dates: start: 20070108, end: 20070222

REACTIONS (3)
  - ANAPHYLACTIC REACTION [None]
  - DYSPHAGIA [None]
  - THROAT TIGHTNESS [None]
